FAERS Safety Report 4333863-9 (Version None)
Quarter: 2004Q2

REPORT INFORMATION
  Report Type: 
  Country: None (occurrence: None)
  Receive Date: 20040402
  Receipt Date: 20040315
  Transmission Date: 20050107
  Serious: Yes (Hospitalization, Other)
  Sender: FDA-Public Use
  Company Number: 04-079-0596

PATIENT
  Age: 52 Year
  Sex: Male

DRUGS (1)
  1. ETOPOSIDE [Suspect]
     Indication: OESOPHAGEAL CARCINOMA
     Dosage: 79.2 MG IV
     Route: 042
     Dates: start: 20030721

REACTIONS (2)
  - FEBRILE NEUTROPENIA [None]
  - LOBAR PNEUMONIA [None]
